FAERS Safety Report 15698176 (Version 1)
Quarter: 2018Q4

REPORT INFORMATION
  Report Type: Spontaneous
  Country: US (occurrence: US)
  Receive Date: 20181127
  Receipt Date: 20181127
  Transmission Date: 20190205
  Serious: No
  Sender: FDA-Public Use
  Company Number: None

PATIENT
  Age: 66 Year
  Sex: Female

DRUGS (1)
  1. ENBREL [Suspect]
     Active Substance: ETANERCEPT
     Dates: start: 20180925

REACTIONS (4)
  - Drug ineffective [None]
  - Injection site rash [None]
  - Dizziness [None]
  - Injection site erythema [None]

NARRATIVE: CASE EVENT DATE: 20181126
